FAERS Safety Report 23733840 (Version 1)
Quarter: 2024Q2

REPORT INFORMATION
  Report Type: Spontaneous
  Country: US (occurrence: US)
  Receive Date: 20240412
  Receipt Date: 20240412
  Transmission Date: 20240716
  Serious: No
  Sender: FDA-Public Use
  Company Number: US-PFIZER INC-202400082053

PATIENT
  Age: 51 Year
  Sex: Female

DRUGS (1)
  1. IBRANCE [Suspect]
     Active Substance: PALBOCICLIB
     Dosage: 125 MG TABLET TAKE BY MOUTH 1 TABLET (125 MG TOTAL) ONCE DAILY FOR 21 DAYS ON FOLLOWED BY 7 DAYS OFF
     Route: 048
     Dates: start: 20230419, end: 2024

REACTIONS (1)
  - Neoplasm progression [Unknown]
